FAERS Safety Report 8950564 (Version 3)
Quarter: 2014Q1

REPORT INFORMATION
  Report Type: Spontaneous
  Country: US (occurrence: US)
  Receive Date: 20121207
  Receipt Date: 20140321
  Transmission Date: 20141002
  Serious: Yes (Hospitalization)
  Sender: FDA-Public Use
  Company Number: US-BAYER-2012-127328

PATIENT
  Age: 26 Year
  Sex: Female
  Weight: 113.38 kg

DRUGS (5)
  1. YASMIN [Suspect]
     Dosage: UNK
     Dates: start: 20010828, end: 20020801
  2. YASMIN [Suspect]
     Dosage: UNK
     Dates: start: 200111, end: 200207
  3. GLUCOPHAGE [Concomitant]
     Indication: INSULIN RESISTANCE
     Dosage: 500 MG, UNK
  4. ZOMIG [Concomitant]
     Indication: MIGRAINE
     Dosage: 5 MG, UNK
  5. LORATAB [Concomitant]
     Indication: PAIN

REACTIONS (9)
  - Cholecystitis chronic [None]
  - Cholecystectomy [None]
  - Pain [None]
  - Injury [None]
  - General physical health deterioration [None]
  - Emotional distress [None]
  - Anxiety [None]
  - Anhedonia [None]
  - Pain [None]
